FAERS Safety Report 8321895-5 (Version None)
Quarter: 2012Q2

REPORT INFORMATION
  Report Type: 
  Country: None (occurrence: None)
  Receive Date: 20120426
  Receipt Date: 20120416
  Transmission Date: 20120825
  Serious: Yes (Hospitalization, Other)
  Sender: FDA-Public Use
  Company Number: AUR-APL-2012-01910

PATIENT
  Age: 63 Year
  Sex: Male

DRUGS (3)
  1. OMEPRAZOLE [Suspect]
     Indication: OESOPHAGITIS
     Dosage: 40 MG (20 MG,2 IN 1 D)
  2. LANSOPRAZOLE [Suspect]
     Indication: BARRETT'S OESOPHAGUS
     Dosage: (30 MG)
  3. RANITIDINE HYDROCHLORIDE [Suspect]
     Indication: GASTRITIS EROSIVE

REACTIONS (22)
  - MYOCLONUS [None]
  - BLOOD LACTIC ACID INCREASED [None]
  - BASE EXCESS DECREASED [None]
  - ELECTROLYTE IMBALANCE [None]
  - ACHLORHYDRIA [None]
  - DIARRHOEA [None]
  - BLOOD PH DECREASED [None]
  - HYPOMAGNESAEMIA [None]
  - DEHYDRATION [None]
  - HELICOBACTER INFECTION [None]
  - RENAL TUBULAR DISORDER [None]
  - CONVULSION [None]
  - LETHARGY [None]
  - NEUTROPHIL COUNT INCREASED [None]
  - PO2 INCREASED [None]
  - VOMITING [None]
  - BLOOD BICARBONATE DECREASED [None]
  - ACUTE PRERENAL FAILURE [None]
  - GASTRITIS EROSIVE [None]
  - HEART RATE INCREASED [None]
  - BLOOD CALCIUM DECREASED [None]
  - BARRETT'S OESOPHAGUS [None]
